FAERS Safety Report 8843067 (Version 2)
Quarter: 2012Q4

REPORT INFORMATION
  Report Type: 
  Country: US (occurrence: US)
  Receive Date: 20121016
  Receipt Date: 20121030
  Transmission Date: 20130627
  Serious: Yes (Other)
  Sender: FDA-Public Use
  Company Number: US-009507513-1209USA010660

PATIENT
  Sex: Female

DRUGS (5)
  1. REBETOL [Suspect]
     Indication: HEPATITIS C
     Dosage: UNK
     Dates: start: 20120514
  2. REBETOL [Suspect]
     Dosage: UNK
     Dates: start: 20100514, end: 20100706
  3. VICTRELIS [Suspect]
     Indication: HEPATITIS C
     Dosage: UNK
     Dates: start: 20120613
  4. PEG-INTRON [Suspect]
     Indication: HEPATITIS C
     Dosage: UNK
     Dates: start: 20120514
  5. PEGASYS [Concomitant]

REACTIONS (14)
  - Tooth malformation [Unknown]
  - Malaise [Recovered/Resolved]
  - Dyspnoea [Unknown]
  - Cough [Unknown]
  - Increased upper airway secretion [Unknown]
  - Amnesia [Unknown]
  - Poor quality sleep [Unknown]
  - Nightmare [Unknown]
  - Micturition disorder [Unknown]
  - Alopecia [Unknown]
  - Weight decreased [Unknown]
  - Skin ulcer [Unknown]
  - Solar lentigo [Unknown]
  - Scab [Unknown]
